FAERS Safety Report 7789608-3 (Version None)
Quarter: 2011Q3

REPORT INFORMATION
  Report Type: 
  Country: None (occurrence: None)
  Receive Date: 20110930
  Receipt Date: 20110926
  Transmission Date: 20111222
  Serious: Yes (Other)
  Sender: FDA-Public Use
  Company Number: US-PFIZER INC-2011229416

PATIENT
  Sex: Female
  Weight: 90.703 kg

DRUGS (12)
  1. PRISTIQ [Suspect]
     Indication: BIPOLAR DISORDER
  2. VESICARE [Concomitant]
     Dosage: 20MG
  3. PRISTIQ [Suspect]
     Indication: BIPOLAR I DISORDER
     Dosage: 100 MG, 1X/DAY
     Route: 048
     Dates: start: 20110501
  4. PRAVACHOL [Concomitant]
     Indication: BLOOD CHOLESTEROL INCREASED
     Dosage: UNK
  5. KLONOPIN [Concomitant]
     Indication: RESTLESS LEGS SYNDROME
     Dosage: 2MG
  6. ABILIFY [Concomitant]
     Indication: BREAKTHROUGH PAIN
     Dosage: 5 MG, 1X/DAY
  7. ATIVAN [Concomitant]
     Indication: ANXIETY
     Dosage: UNK
  8. ZESTRIL [Concomitant]
     Indication: HYPERTENSION
     Dosage: 20MG
  9. FLEXERIL [Concomitant]
     Indication: BACK DISORDER
     Dosage: 15MG
  10. ATIVAN [Concomitant]
     Indication: DEPRESSION
  11. FINASTERIDE [Concomitant]
     Dosage: UNK
  12. NEURONTIN [Concomitant]
     Indication: BACK PAIN
     Dosage: 400MG

REACTIONS (2)
  - WITHDRAWAL SYNDROME [None]
  - BLOOD CHOLESTEROL INCREASED [None]
